FAERS Safety Report 14491129 (Version 3)
Quarter: 2018Q2

REPORT INFORMATION
  Report Type: Spontaneous
  Country: AU (occurrence: AU)
  Receive Date: 20180206
  Receipt Date: 20180607
  Transmission Date: 20180711
  Serious: Yes (Death, Other)
  Sender: FDA-Public Use
  Company Number: AU-CELGENEUS-AUS-20180108097

PATIENT
  Sex: Male

DRUGS (1)
  1. AZACITIDINE. [Suspect]
     Active Substance: AZACITIDINE
     Indication: MYELODYSPLASTIC SYNDROME
     Dosage: 164 MILLIGRAM
     Route: 058
     Dates: start: 20121022, end: 20171121

REACTIONS (1)
  - Haemothorax [Fatal]
